FAERS Safety Report 8965084 (Version 1)
Quarter: 2012Q4

REPORT INFORMATION
  Report Type: 
  Country: US (occurrence: US)
  Receive Date: 20121213
  Receipt Date: 20121213
  Transmission Date: 20130627
  Serious: No
  Sender: FDA-Public Use
  Company Number: US-BRISTOL-MYERS SQUIBB COMPANY-16600306

PATIENT
  Age: 64 Year
  Sex: Male

DRUGS (1)
  1. PRAVACHOL [Suspect]
     Dosage: Drug recently restarted.

REACTIONS (1)
  - Weight decreased [Unknown]
